FAERS Safety Report 8062643-6 (Version None)
Quarter: 2012Q1

REPORT INFORMATION
  Report Type: 
  Country: None (occurrence: None)
  Receive Date: 20120118
  Receipt Date: 20120103
  Transmission Date: 20120608
  Serious: Yes (Hospitalization, Other)
  Sender: FDA-Public Use
  Company Number: 20110832

PATIENT
  Age: 45 Year
  Sex: Female

DRUGS (1)
  1. LIDOCAINE 1% INJ [Suspect]
     Indication: PRODUCT USED FOR UNKNOWN INDICATION
     Dosage: INTRA-ARTICULAR
     Route: 014
     Dates: start: 20110906, end: 20110906

REACTIONS (7)
  - PRODUCT QUALITY ISSUE [None]
  - ABSCESS NECK [None]
  - CONDITION AGGRAVATED [None]
  - TRANSMISSION OF AN INFECTIOUS AGENT VIA A MEDICINAL PRODUCT [None]
  - OFF LABEL USE [None]
  - PAIN [None]
  - SUBCUTANEOUS ABSCESS [None]
